FAERS Safety Report 8414401-8 (Version None)
Quarter: 2012Q2

REPORT INFORMATION
  Report Type: 
  Country: None (occurrence: None)
  Receive Date: 20120605
  Receipt Date: 20120523
  Transmission Date: 20120825
  Serious: Yes (Hospitalization)
  Sender: FDA-Public Use
  Company Number: ES-MYLANLABS-2012S1010863

PATIENT
  Age: 83 Year
  Sex: Male

DRUGS (10)
  1. OMEPRAZOLE [Suspect]
     Route: 065
  2. TORSEMIDE [Concomitant]
  3. LEVOTHYROXINE SODIUM [Concomitant]
  4. VITAMIN D ANALOGUES [Concomitant]
  5. ALLOPURINOL [Concomitant]
  6. PREDNISONE [Concomitant]
  7. MANIDIPINE [Concomitant]
  8. ACENOCOUMAROL [Concomitant]
  9. BISOPROLOL FUMARATE [Concomitant]
  10. CALCIUM [Concomitant]

REACTIONS (6)
  - HYPOCALCAEMIA [None]
  - VOMITING [None]
  - DISORIENTATION [None]
  - HYPOMAGNESAEMIA [None]
  - MUSCULAR WEAKNESS [None]
  - ASTHENIA [None]
